FAERS Safety Report 5115444-2 (Version None)
Quarter: 2006Q3

REPORT INFORMATION
  Report Type: 
  Country: None (occurrence: None)
  Receive Date: 20060919
  Receipt Date: 20060913
  Transmission Date: 20061208
  Serious: Yes (Death, Hospitalization)
  Sender: FDA-Public Use
  Company Number: 2006-143857-NL

PATIENT
  Age: 89 Year
  Sex: Female

DRUGS (13)
  1. DANAPAROID SODIUM [Suspect]
     Indication: DISSEMINATED INTRAVASCULAR COAGULATION
     Route: 042
     Dates: start: 20051107, end: 20051115
  2. ANTITHROMBIN III [Concomitant]
  3. GABEXATE MESILATE [Concomitant]
  4. DOPAMINE HCL [Concomitant]
  5. CARPERITIDE [Concomitant]
  6. INSULIN HUMAN [Concomitant]
  7. FUROSEMIDE [Concomitant]
  8. MIDAZOLAM HCL [Concomitant]
  9. CEFOTIAM HYDROCHLORIDE [Concomitant]
  10. SULPERAZON [Concomitant]
  11. FAMOTIDINE [Concomitant]
  12. OMEPRAZOLE [Concomitant]
  13. BROMHEXINE HYDROCHLORIDE [Concomitant]

REACTIONS (5)
  - DIABETES MELLITUS [None]
  - GASTRIC HAEMORRHAGE [None]
  - HYPERTENSION [None]
  - PNEUMONIA [None]
  - RENAL IMPAIRMENT [None]
